FAERS Safety Report 11997216 (Version 1)
Quarter: 2016Q1

REPORT INFORMATION
  Report Type: Report from Study
  Country: US (occurrence: US)
  Receive Date: 20160203
  Receipt Date: 20160203
  Transmission Date: 20160526
  Serious: Yes (Other)
  Sender: FDA-Public Use
  Company Number: US-AMGEN-USASL2016010645

PATIENT
  Age: 54 Year
  Sex: Female

DRUGS (1)
  1. ENBREL [Suspect]
     Active Substance: ETANERCEPT
     Indication: RHEUMATOID ARTHRITIS
     Dosage: 50 MG, UNK
     Route: 065
     Dates: start: 2012

REACTIONS (6)
  - Decreased immune responsiveness [Unknown]
  - Rheumatoid arthritis [Unknown]
  - Nasopharyngitis [Unknown]
  - Malaise [Unknown]
  - Neuralgia [Recovered/Resolved]
  - Herpes zoster [Recovered/Resolved]
